FAERS Safety Report 22272836 (Version 1)
Quarter: 2023Q2

REPORT INFORMATION
  Report Type: Spontaneous
  Country: US (occurrence: US)
  Receive Date: 20230502
  Receipt Date: 20230502
  Transmission Date: 20230722
  Serious: Yes (Other)
  Sender: FDA-Public Use
  Company Number: US-GILEAD-2023-0626363

PATIENT
  Sex: Female

DRUGS (1)
  1. HEPSERA [Suspect]
     Active Substance: ADEFOVIR DIPIVOXIL
     Indication: Hepatitis B
     Dosage: UNK
     Route: 065
     Dates: start: 2003

REACTIONS (1)
  - Lactic acidosis [Unknown]
